FAERS Safety Report 18235332 (Version 1)
Quarter: 2020Q3

REPORT INFORMATION
  Report Type: Spontaneous
  Country: SE (occurrence: SE)
  Receive Date: 20200905
  Receipt Date: 20200905
  Transmission Date: 20201103
  Serious: Yes (Life-Threatening, Disabling)
  Sender: FDA-Public Use
  Company Number: SE-AUROBINDO-AUR-APL-2020-046271

PATIENT
  Age: 73 Year
  Sex: Female

DRUGS (1)
  1. OMEPRAZOLE GASTRO?RESISTANT CAPSULE [Suspect]
     Active Substance: OMEPRAZOLE
     Indication: GASTROOESOPHAGEAL REFLUX DISEASE
     Dosage: ONE DOSE WITH UNSPECIFIED UNITS, ONCE A DAY
     Route: 048
     Dates: start: 20200506, end: 20200809

REACTIONS (1)
  - Nephropathy [Unknown]

NARRATIVE: CASE EVENT DATE: 20200807
